FAERS Safety Report 6938368-4 (Version None)
Quarter: 2010Q3

REPORT INFORMATION
  Report Type: 
  Country: None (occurrence: None)
  Receive Date: 20100824
  Receipt Date: 20100812
  Transmission Date: 20110219
  Serious: Yes (Disabling)
  Sender: FDA-Public Use
  Company Number: GB-PFIZER INC-2010084367

PATIENT
  Age: 63 Year
  Sex: Female
  Weight: 58.05 kg

DRUGS (4)
  1. XALATAN [Suspect]
     Indication: GLAUCOMA
     Dosage: UNK
     Route: 047
     Dates: start: 20080101
  2. AZOPT [Concomitant]
     Indication: GLAUCOMA
     Dosage: UNK
     Route: 047
  3. LANSOPRAZOLE [Concomitant]
     Dosage: 15MG OR 30MG DAILY
     Route: 048
  4. BRICANYL [Concomitant]
     Indication: ASTHMA
     Dosage: UNK

REACTIONS (6)
  - DERMATITIS [None]
  - EYE PAIN [None]
  - EYE PRURITUS [None]
  - HYPERSENSITIVITY [None]
  - LACRIMATION INCREASED [None]
  - OCULAR HYPERAEMIA [None]
